FAERS Safety Report 16889436 (Version 2)
Quarter: 2019Q4

REPORT INFORMATION
  Report Type: Spontaneous
  Country: CA (occurrence: CA)
  Receive Date: 20191007
  Receipt Date: 20191015
  Transmission Date: 20200122
  Serious: Yes (Life-Threatening, Other)
  Sender: FDA-Public Use
  Company Number: CA-TEVA-2019-CA-1072400

PATIENT
  Age: 55 Year
  Sex: Female
  Weight: 42 kg

DRUGS (3)
  1. FUROSEMIDE INJ USP [Suspect]
     Active Substance: FUROSEMIDE
     Indication: PULMONARY HYPERTENSION
  2. SILDENAFIL CITRATE. [Suspect]
     Active Substance: SILDENAFIL CITRATE
     Indication: PULMONARY HYPERTENSION
     Route: 065
  3. FUROSEMIDE INJ USP [Suspect]
     Active Substance: FUROSEMIDE
     Indication: RIGHT VENTRICULAR FAILURE
     Route: 065

REACTIONS (1)
  - Drug ineffective [Unknown]
